FAERS Safety Report 12319755 (Version 1)
Quarter: 2016Q2

REPORT INFORMATION
  Report Type: Spontaneous
  Country: US (occurrence: US)
  Receive Date: 20160429
  Receipt Date: 20160429
  Transmission Date: 20160815
  Serious: Yes (Other)
  Sender: FDA-Public Use
  Company Number: US-JNJFOC-20160121446

PATIENT
  Age: 49 Year
  Sex: Male

DRUGS (1)
  1. FENTANYL CITRATE. [Suspect]
     Active Substance: FENTANYL CITRATE
     Indication: NECK PAIN
     Route: 040

REACTIONS (3)
  - Pulmonary oedema [Recovering/Resolving]
  - Muscle rigidity [Recovering/Resolving]
  - Laryngeal disorder [Recovering/Resolving]
